FAERS Safety Report 23629622 (Version 1)
Quarter: 2024Q1

REPORT INFORMATION
  Report Type: Spontaneous
  Country: FR (occurrence: FR)
  Receive Date: 20240314
  Receipt Date: 20240314
  Transmission Date: 20240410
  Serious: Yes (Other)
  Sender: FDA-Public Use
  Company Number: FR-AMGEN-FRASP2024046774

PATIENT
  Age: 14 Month
  Sex: Female

DRUGS (7)
  1. FILGRASTIM [Suspect]
     Active Substance: FILGRASTIM
     Indication: Infantile genetic agranulocytosis
     Dosage: UNK
     Route: 065
  2. FILGRASTIM [Suspect]
     Active Substance: FILGRASTIM
     Dosage: 10 MILLIGRAM/KILOGRAM, QD
     Route: 065
  3. FILGRASTIM [Suspect]
     Active Substance: FILGRASTIM
     Dosage: 20 MILLIGRAM/KILOGRAM, QD
     Route: 065
  4. FILGRASTIM [Suspect]
     Active Substance: FILGRASTIM
     Dosage: 100 MICROGRAM PER MILLIGRAM, QD
     Route: 065
  5. SULFAMETHOXAZOLE AND TRIMETHOPRIM [Concomitant]
     Active Substance: SULFAMETHOXAZOLE\TRIMETHOPRIM
     Indication: Product used for unknown indication
     Dosage: 25 MILLIGRAM/KILOGRAM, QD
  6. ERTAPENEM [Concomitant]
     Active Substance: ERTAPENEM
     Indication: Fungal infection
     Dosage: 30 MILLIGRAM/KILOGRAM, QD
  7. CIPROFLOXACIN [Concomitant]
     Active Substance: CIPROFLOXACIN
     Indication: Fungal infection
     Dosage: 30 MILLIGRAM/KILOGRAM, QD

REACTIONS (5)
  - Liver abscess [Unknown]
  - Escherichia infection [Unknown]
  - Epstein-Barr virus infection [Unknown]
  - Blood stem cell transplant failure [Unknown]
  - Treatment failure [Unknown]
